FAERS Safety Report 9671445 (Version 2)
Quarter: 2013Q4

REPORT INFORMATION
  Report Type: Spontaneous
  Country: GB (occurrence: GB)
  Receive Date: 20131106
  Receipt Date: 20131114
  Transmission Date: 20140711
  Serious: No
  Sender: FDA-Public Use
  Company Number: PHFR2013GB006182

PATIENT
  Age: 52 Year
  Sex: Female

DRUGS (1)
  1. CLOZARIL [Suspect]
     Indication: SCHIZOPHRENIA
     Dosage: UNK
     Route: 048
     Dates: start: 20061128

REACTIONS (5)
  - Influenza [Unknown]
  - Nasopharyngitis [Unknown]
  - Toothache [Unknown]
  - White blood cell count decreased [Recovered/Resolved]
  - Platelet count increased [Unknown]
